FAERS Safety Report 4836289-4 (Version None)
Quarter: 2005Q4

REPORT INFORMATION
  Report Type: 
  Country: None (occurrence: None)
  Receive Date: 20051123
  Receipt Date: 20051111
  Transmission Date: 20060501
  Serious: Yes (Hospitalization)
  Sender: FDA-Public Use
  Company Number: DE-JNJFOC-20051103405

PATIENT
  Age: 37 Year
  Sex: Male

DRUGS (6)
  1. RISPERDAL [Suspect]
     Indication: SCHIZOAFFECTIVE DISORDER
     Route: 048
  2. CIATYL-Z ACUPHASE [Suspect]
     Route: 030
  3. CIATYL-Z ACUPHASE [Suspect]
     Indication: SCHIZOAFFECTIVE DISORDER
     Route: 030
  4. HALOPERIDOL [Suspect]
     Indication: SCHIZOAFFECTIVE DISORDER
     Route: 030
  5. LITHIUM CARBONATE [Suspect]
     Indication: SCHIZOAFFECTIVE DISORDER
  6. LORAZEPAM [Concomitant]
     Route: 048

REACTIONS (5)
  - AGGRESSION [None]
  - BLOOD CREATINE PHOSPHOKINASE INCREASED [None]
  - BODY TEMPERATURE INCREASED [None]
  - CHILLS [None]
  - DISTURBANCE IN ATTENTION [None]
